FAERS Safety Report 8457841-3 (Version None)
Quarter: 2012Q2

REPORT INFORMATION
  Report Type: 
  Country: None (occurrence: None)
  Receive Date: 20120622
  Receipt Date: 20120611
  Transmission Date: 20120825
  Serious: Yes (Hospitalization)
  Sender: FDA-Public Use
  Company Number: PL-US-EMD SERONO, INC.-7139686

PATIENT
  Sex: Female
  Weight: 1 kg

DRUGS (3)
  1. FENOTEROL [Concomitant]
     Indication: PRODUCT USED FOR UNKNOWN INDICATION
     Route: 064
  2. CELESTAN [Concomitant]
     Indication: PRODUCT USED FOR UNKNOWN INDICATION
     Route: 064
  3. CLOMIPHENE CITRATE [Suspect]
     Route: 064

REACTIONS (6)
  - RETINOPATHY OF PREMATURITY [None]
  - BRONCHOPULMONARY DYSPLASIA [None]
  - NEONATAL RESPIRATORY DISTRESS SYNDROME [None]
  - HAEMORRHAGE [None]
  - LOW BIRTH WEIGHT BABY [None]
  - PREMATURE BABY [None]
